FAERS Safety Report 19085576 (Version 4)
Quarter: 2021Q2

REPORT INFORMATION
  Report Type: Spontaneous
  Country: JP (occurrence: JP)
  Receive Date: 20210401
  Receipt Date: 20210617
  Transmission Date: 20210717
  Serious: Yes (Other)
  Sender: FDA-Public Use
  Company Number: JP-SAKK-2021SA104936AA

PATIENT
  Age: 53 Year
  Sex: Male

DRUGS (8)
  1. SPIRIVA [Concomitant]
     Active Substance: TIOTROPIUM BROMIDE MONOHYDRATE
     Indication: ASTHMA
     Dosage: 2 INHALATIONS, QD
     Route: 055
     Dates: start: 20190608
  2. DUPIXENT [Suspect]
     Active Substance: DUPILUMAB
     Dosage: 600 MG, 1X
     Route: 058
     Dates: start: 20210206, end: 20210206
  3. ERYTHROCIN #2 [Concomitant]
     Indication: ASTHMA
     Dosage: 200 MG, BID
     Route: 048
     Dates: start: 20200328
  4. THEO?DUR [Concomitant]
     Active Substance: THEOPHYLLINE ANHYDROUS
     Indication: ASTHMA
     Dosage: 200 MG, BID
     Route: 048
     Dates: start: 20190608
  5. DUPIXENT [Suspect]
     Active Substance: DUPILUMAB
     Indication: ASTHMA
     Dosage: 300 MG, 1X
     Route: 058
     Dates: start: 20210220, end: 20210220
  6. FLUTIFORM [Concomitant]
     Active Substance: FLUTICASONE PROPIONATE\FORMOTEROL FUMARATE
     Indication: ASTHMA
     Dosage: 4 INHALATIONS, BID
     Route: 055
     Dates: start: 20190608
  7. KIPRES [Concomitant]
     Active Substance: MONTELUKAST SODIUM
     Indication: ASTHMA
     Dosage: 10 MG, QD
     Route: 048
     Dates: start: 20190608
  8. ERYTHROCIN #2 [Concomitant]
     Indication: BRONCHOPULMONARY ASPERGILLOSIS ALLERGIC
     Dosage: UNK
     Route: 048

REACTIONS (7)
  - Bronchopulmonary aspergillosis allergic [Not Recovered/Not Resolved]
  - Cough [Not Recovered/Not Resolved]
  - Sputum increased [Not Recovered/Not Resolved]
  - Sputum purulent [Not Recovered/Not Resolved]
  - Asthma [Not Recovered/Not Resolved]
  - Wheezing [Not Recovered/Not Resolved]
  - Drug ineffective [Not Recovered/Not Resolved]

NARRATIVE: CASE EVENT DATE: 2021
